FAERS Safety Report 6755647-4 (Version None)
Quarter: 2010Q2

REPORT INFORMATION
  Report Type: 
  Country: None (occurrence: None)
  Receive Date: 20100604
  Receipt Date: 20100325
  Transmission Date: 20101027
  Serious: Yes (Hospitalization, Other)
  Sender: FDA-Public Use
  Company Number: US-BAYER-201017169NA

PATIENT
  Age: 35 Year
  Sex: Female
  Weight: 82 kg

DRUGS (7)
  1. OCELLA [Suspect]
     Indication: DRUG USE FOR UNKNOWN INDICATION
     Route: 048
  2. YAZ [Suspect]
     Indication: ORAL CONTRACEPTION
     Dosage: PHARMACY RECORDS: 17-SEP-2007 TO 02-JAN-2008
     Route: 048
     Dates: start: 20070901, end: 20080101
  3. YASMIN [Suspect]
     Indication: ORAL CONTRACEPTION
     Dosage: PHARMACY RECORDS: 26-FEB2007
     Route: 048
     Dates: start: 20070201
  4. PROPOXYPHENE NAPSYLATE AND ACETAMINOPHEN [Concomitant]
  5. METOCLOPRAMIDE [Concomitant]
  6. CLIDINIUM [Concomitant]
  7. TRILYTE [Concomitant]

REACTIONS (4)
  - ABDOMINAL PAIN [None]
  - BILIARY DILATATION [None]
  - CHOLELITHIASIS [None]
  - LIVER DISORDER [None]
